FAERS Safety Report 10562381 (Version 1)
Quarter: 2014Q4

REPORT INFORMATION
  Report Type: Spontaneous
  Country: US (occurrence: None)
  Receive Date: 20141103
  Receipt Date: 20141103
  Transmission Date: 20150529
  Serious: Yes (Hospitalization)
  Sender: FDA-Public Use
  Company Number: None

PATIENT
  Age: 57 Year
  Sex: Female
  Weight: 66.2 kg

DRUGS (1)
  1. INTRON A [Suspect]
     Active Substance: INTERFERON ALFA-2B
     Dosage: 515 MU
     Dates: end: 20140707

REACTIONS (2)
  - Blood alkaline phosphatase increased [None]
  - Blood albumin increased [None]

NARRATIVE: CASE EVENT DATE: 20140630
